FAERS Safety Report 26128428 (Version 2)
Quarter: 2025Q4

REPORT INFORMATION
  Report Type: Spontaneous
  Country: CN (occurrence: CN)
  Receive Date: 20251207
  Receipt Date: 20251210
  Transmission Date: 20260118
  Serious: Yes (Life-Threatening, Hospitalization)
  Sender: BEIGENE
  Company Number: CN-BEONEMEDICINES-BGN-2025-021893

PATIENT
  Sex: Male

DRUGS (21)
  1. TISLELIZUMAB [Suspect]
     Active Substance: TISLELIZUMAB
     Indication: Squamous cell carcinoma of lung
     Dosage: UNK
  2. TISLELIZUMAB [Suspect]
     Active Substance: TISLELIZUMAB
     Dosage: UNK
  3. TISLELIZUMAB [Suspect]
     Active Substance: TISLELIZUMAB
     Dosage: UNK
  4. TISLELIZUMAB [Suspect]
     Active Substance: TISLELIZUMAB
     Dosage: UNK
  5. TISLELIZUMAB [Suspect]
     Active Substance: TISLELIZUMAB
     Dosage: UNK
  6. TISLELIZUMAB [Suspect]
     Active Substance: TISLELIZUMAB
     Dosage: UNK
  7. TISLELIZUMAB [Suspect]
     Active Substance: TISLELIZUMAB
     Dosage: UNK
  8. TISLELIZUMAB [Suspect]
     Active Substance: TISLELIZUMAB
     Dosage: UNK
  9. TISLELIZUMAB [Suspect]
     Active Substance: TISLELIZUMAB
     Dosage: UNK
  10. TISLELIZUMAB [Suspect]
     Active Substance: TISLELIZUMAB
     Dosage: UNK
  11. TISLELIZUMAB [Suspect]
     Active Substance: TISLELIZUMAB
     Dosage: UNK
  12. TISLELIZUMAB [Suspect]
     Active Substance: TISLELIZUMAB
     Dosage: UNK
  13. TISLELIZUMAB [Suspect]
     Active Substance: TISLELIZUMAB
     Dosage: UNK
  14. TISLELIZUMAB [Suspect]
     Active Substance: TISLELIZUMAB
     Dosage: UNK
  15. TISLELIZUMAB [Suspect]
     Active Substance: TISLELIZUMAB
     Dosage: UNK
  16. TISLELIZUMAB [Suspect]
     Active Substance: TISLELIZUMAB
     Dosage: UNK
  17. TISLELIZUMAB [Suspect]
     Active Substance: TISLELIZUMAB
     Dosage: UNK
  18. TISLELIZUMAB [Suspect]
     Active Substance: TISLELIZUMAB
     Dosage: UNK
  19. PACLITAXEL [Concomitant]
     Active Substance: PACLITAXEL
     Indication: Squamous cell carcinoma of lung
     Dosage: 3 CYCLES
  20. NEDAPLATIN [Concomitant]
     Active Substance: NEDAPLATIN
     Indication: Squamous cell carcinoma of lung
     Dosage: 6 CYCLES
  21. DOCETAXEL [Concomitant]
     Active Substance: DOCETAXEL
     Indication: Squamous cell carcinoma of lung
     Dosage: 3 CYCLES

REACTIONS (1)
  - Fulminant type 1 diabetes mellitus [Recovering/Resolving]

NARRATIVE: CASE EVENT DATE: 20250111
